FAERS Safety Report 10041070 (Version 1)
Quarter: 2014Q1

REPORT INFORMATION
  Report Type: Report from Study
  Country: US (occurrence: US)
  Receive Date: 20140327
  Receipt Date: 20140327
  Transmission Date: 20141002
  Serious: Yes (Hospitalization, Other)
  Sender: FDA-Public Use
  Company Number: US-ALEXION PHARMACEUTICALS INC.-A201102210

PATIENT
  Sex: Female

DRUGS (2)
  1. SOLIRIS [Suspect]
     Indication: PAROXYSMAL NOCTURNAL HAEMOGLOBINURIA
     Dosage: UNK
     Route: 042
  2. ATG                                /00575401/ [Concomitant]
     Indication: IMMUNOSUPPRESSION
     Dosage: UNK

REACTIONS (7)
  - Sepsis [Unknown]
  - Transfusion [Unknown]
  - Platelet disorder [Unknown]
  - Transfusion reaction [Unknown]
  - Haptoglobin increased [Unknown]
  - Cystitis [Unknown]
  - Hypotension [Unknown]
